FAERS Safety Report 10906306 (Version 1)
Quarter: 2015Q1

REPORT INFORMATION
  Report Type: Spontaneous
  Country: US (occurrence: US)
  Receive Date: 20150311
  Receipt Date: 20150311
  Transmission Date: 20150721
  Serious: Yes (Death, Hospitalization)
  Sender: FDA-Public Use
  Company Number: PHHY2015US027623

PATIENT

DRUGS (1)
  1. BUPROPION [Suspect]
     Active Substance: BUPROPION
     Indication: PRODUCT USED FOR UNKNOWN INDICATION
     Route: 065

REACTIONS (7)
  - Overdose [Fatal]
  - Unresponsive to stimuli [Unknown]
  - Cardiac arrest [Unknown]
  - Seizure [Unknown]
  - Hallucination [Unknown]
  - Toxicity to various agents [Fatal]
  - Agitation [Unknown]
